FAERS Safety Report 7927630-4 (Version None)
Quarter: 2011Q4

REPORT INFORMATION
  Report Type: 
  Country: None (occurrence: None)
  Receive Date: 20111118
  Receipt Date: 20111107
  Transmission Date: 20120403
  Serious: Yes (Hospitalization)
  Sender: FDA-Public Use
  Company Number: US-BAYER-2011-082101

PATIENT
  Age: 21 Year
  Sex: Female
  Weight: 63.492 kg

DRUGS (7)
  1. IBUPROFEN (ADVIL) [Concomitant]
  2. YAZ [Suspect]
     Indication: ACNE
     Dosage: UNK
     Dates: start: 20071001, end: 20080601
  3. YASMIN [Suspect]
     Indication: ACNE
     Dosage: UNK
     Dates: start: 20071001, end: 20080601
  4. VERAMYST [Concomitant]
  5. YAZ [Suspect]
     Indication: PREMENSTRUAL SYNDROME
  6. YASMIN [Suspect]
     Indication: PREMENSTRUAL SYNDROME
  7. XYZAL [Concomitant]

REACTIONS (8)
  - HYPOAESTHESIA [None]
  - INJURY [None]
  - TRANSIENT ISCHAEMIC ATTACK [None]
  - CEREBROVASCULAR ACCIDENT [None]
  - DYSARTHRIA [None]
  - PAIN [None]
  - AMNESIA [None]
  - MIGRAINE [None]
